FAERS Safety Report 17121330 (Version 1)
Quarter: 2019Q4

REPORT INFORMATION
  Report Type: Spontaneous
  Country: US (occurrence: US)
  Receive Date: 20191206
  Receipt Date: 20191206
  Transmission Date: 20200122
  Serious: Yes (Other)
  Sender: FDA-Public Use
  Company Number: US-UCBSA-2017024365

PATIENT
  Age: 73 Year
  Sex: Female
  Weight: 59.86 kg

DRUGS (13)
  1. CALCIUM MAGNESIUM [Concomitant]
     Active Substance: CALCIUM\MAGNESIUM
     Indication: PRODUCT USED FOR UNKNOWN INDICATION
     Dosage: UNK, 3X/WEEK; STARTED SEVERAL YEARS AGO
     Route: 048
  2. NEUPRO [Suspect]
     Active Substance: ROTIGOTINE
     Indication: PARKINSON^S DISEASE
     Dosage: 1 MG, ONCE DAILY (QD)
     Dates: start: 20170612, end: 2017
  3. NEUPRO [Suspect]
     Active Substance: ROTIGOTINE
     Dosage: 2 MG, ONCE DAILY (QD)
     Dates: start: 2017, end: 2017
  4. NEUPRO [Suspect]
     Active Substance: ROTIGOTINE
     Dosage: 6 MG, UNK
     Dates: start: 2017, end: 2017
  5. NEUPRO [Suspect]
     Active Substance: ROTIGOTINE
     Dosage: 8 MG, UNK
     Dates: start: 2017, end: 2017
  6. NEUPRO [Suspect]
     Active Substance: ROTIGOTINE
     Dosage: 6 MG, UNK
     Dates: start: 20171207
  7. SUPER B COMPLEX [Concomitant]
     Active Substance: CYANOCOBALAMIN\DEXPANTHENOL\NIACINAMIDE\PYRIDOXINE HYDROCHLORIDE\RIBOFLAVIN 5^-PHOSPHATE SODIUM\THIAMINE HYDROCHLORIDE\VITAMIN B COMPLEX
     Indication: SUPPLEMENTATION THERAPY
     Dosage: UNK, 3X/WEEK
     Route: 048
     Dates: start: 201611
  8. NEUPRO [Suspect]
     Active Substance: ROTIGOTINE
     Dosage: 4 MG, ONCE DAILY (QD)
     Dates: start: 2017, end: 2017
  9. ASA [Concomitant]
     Active Substance: ASPIRIN
     Indication: PRODUCT USED FOR UNKNOWN INDICATION
     Dosage: 1 DF, ONCE DAILY (QD), AT BED TIME, STRENGTH: 81 MG
     Route: 048
     Dates: start: 2015
  10. LOSARTAN/HCTZ GT [Concomitant]
     Active Substance: HYDROCHLOROTHIAZIDE\LOSARTAN
     Dosage: STRENGTH: 100MG/25MG 2 DF, ONCE DAILY (QD)
     Route: 048
     Dates: start: 20170621
  11. LOSARTAN/HCTZ GT [Concomitant]
     Active Substance: HYDROCHLOROTHIAZIDE\LOSARTAN
     Indication: HYPERTENSION
     Dosage: STRENGTH: 100MG/25MG, QAM
     Route: 048
     Dates: start: 2000
  12. VITAMIN D3 [Concomitant]
     Active Substance: CHOLECALCIFEROL
     Indication: SUPPLEMENTATION THERAPY
     Dosage: 1000 IU, ONCE DAILY (QD)
     Route: 048
     Dates: start: 201611
  13. LOSARTAN. [Concomitant]
     Active Substance: LOSARTAN
     Indication: BLOOD PRESSURE MEASUREMENT

REACTIONS (5)
  - Drug ineffective [Unknown]
  - Somnolence [Not Recovered/Not Resolved]
  - Hypotension [Not Recovered/Not Resolved]
  - Application site rash [Not Recovered/Not Resolved]
  - Blood pressure increased [Not Recovered/Not Resolved]

NARRATIVE: CASE EVENT DATE: 20170612
